FAERS Safety Report 8575908 (Version 2)
Quarter: 2013Q4

REPORT INFORMATION
  Report Type: Spontaneous
  Country: US (occurrence: US)
  Receive Date: 20120523
  Receipt Date: 20131211
  Transmission Date: 20140711
  Serious: Yes (Other)
  Sender: FDA-Public Use
  Company Number: PHEH2012US010410

PATIENT
  Sex: Female

DRUGS (5)
  1. DIOVAN [Suspect]
     Dosage: 160 MG, UNK
  2. DIOVAN [Suspect]
     Dosage: 40 MG, UNK
  3. DIOVAN [Suspect]
     Dosage: 80 MG, QD
  4. ASPIRIN ^BAYER^ [Concomitant]
     Dosage: 1 DF, DAILY
  5. PRAVASTATIN [Concomitant]
     Dosage: UNK UKN, UNK

REACTIONS (7)
  - Cerebrovascular accident [Unknown]
  - Burning sensation [Unknown]
  - Pollakiuria [Unknown]
  - Tongue discolouration [Unknown]
  - Hypoaesthesia [Unknown]
  - Chest discomfort [Unknown]
  - Paraesthesia [Unknown]
